FAERS Safety Report 10660824 (Version 1)
Quarter: 2014Q4

REPORT INFORMATION
  Report Type: Other
  Country: CA (occurrence: CA)
  Receive Date: 20141217
  Receipt Date: 20141217
  Transmission Date: 20150529
  Serious: Yes (Other)
  Sender: FDA-Public Use
  Company Number: CA-MYLANLABS-2014M1013677

PATIENT

DRUGS (6)
  1. ANDRIOL [Concomitant]
     Active Substance: TESTOSTERONE UNDECANOATE
  2. SYMBICORT [Suspect]
     Active Substance: BUDESONIDE\FORMOTEROL FUMARATE DIHYDRATE
     Dosage: UNK, BID
     Route: 045
  3. CALCIUM CARBONATE. [Concomitant]
     Active Substance: CALCIUM CARBONATE
  4. ERGOCALCIFEROL. [Concomitant]
     Active Substance: ERGOCALCIFEROL
  5. BUDESONIDE. [Suspect]
     Active Substance: BUDESONIDE
     Dosage: 100 MG, BID
     Route: 045
  6. PROLIA [Suspect]
     Active Substance: DENOSUMAB
     Dosage: 60 MG, Q6MO
     Route: 058

REACTIONS (1)
  - Ankle fracture [Recovering/Resolving]
